FAERS Safety Report 19687295 (Version 2)
Quarter: 2021Q3

REPORT INFORMATION
  Report Type: Spontaneous
  Country: IT (occurrence: IT)
  Receive Date: 20210811
  Receipt Date: 20210830
  Transmission Date: 20211014
  Serious: Yes (Death, Other)
  Sender: FDA-Public Use
  Company Number: IT-BRISTOL-MYERS SQUIBB COMPANY-BMS-2021-078955

PATIENT
  Age: 87 Year
  Sex: Female

DRUGS (1)
  1. OPDIVO [Suspect]
     Active Substance: NIVOLUMAB
     Indication: MALIGNANT MELANOMA
     Dosage: 240 MILLIGRAM, 1 CYCLICAL
     Route: 042
     Dates: start: 20210531, end: 20210614

REACTIONS (4)
  - Eyelid ptosis [Fatal]
  - Respiratory failure [Fatal]
  - Myasthenia gravis [Fatal]
  - Dropped head syndrome [Fatal]

NARRATIVE: CASE EVENT DATE: 20210625
